FAERS Safety Report 10055239 (Version 4)
Quarter: 2014Q2

REPORT INFORMATION
  Report Type: Spontaneous
  Country: JP (occurrence: JP)
  Receive Date: 20140403
  Receipt Date: 20140616
  Transmission Date: 20141212
  Serious: Yes (Hospitalization, Other)
  Sender: FDA-Public Use
  Company Number: JP-PFIZER INC-2014087431

PATIENT
  Age: 75 Year
  Sex: Female

DRUGS (2)
  1. AZULFIDINE EN [Suspect]
     Dosage: UNK
     Route: 048
     Dates: start: 20140314, end: 20140326
  2. CELECOXIB [Concomitant]

REACTIONS (7)
  - Rash [Recovered/Resolved]
  - Stomatitis [Recovered/Resolved]
  - Face oedema [Recovered/Resolved]
  - Hepatic enzyme increased [Recovered/Resolved]
  - Pyrexia [Recovered/Resolved]
  - Tongue discolouration [Recovered/Resolved]
  - Malaise [Recovered/Resolved]
